FAERS Safety Report 19221354 (Version 2)
Quarter: 2021Q2

REPORT INFORMATION
  Report Type: Spontaneous
  Country: AU (occurrence: AU)
  Receive Date: 20210506
  Receipt Date: 20210604
  Transmission Date: 20210717
  Serious: Yes (Death, Hospitalization)
  Sender: FDA-Public Use
  Company Number: AU-EISAI MEDICAL RESEARCH-EC-2021-092259

PATIENT
  Age: 58 Year
  Sex: Male
  Weight: 114 kg

DRUGS (21)
  1. LENVIMA [Suspect]
     Active Substance: LENVATINIB
     Indication: HEPATOCELLULAR CARCINOMA
     Route: 048
     Dates: start: 202007
  2. PREGABALIN. [Concomitant]
     Active Substance: PREGABALIN
     Indication: PRODUCT USED FOR UNKNOWN INDICATION
     Dosage: 250 MG DAILY (FREQUENCY UNKNOWN)
     Route: 048
     Dates: start: 20191014
  3. ENDONE [Concomitant]
     Active Substance: OXYCODONE HYDROCHLORIDE
     Indication: PRODUCT USED FOR UNKNOWN INDICATION
     Route: 048
     Dates: start: 20191014, end: 20201214
  4. METHADONE [Concomitant]
     Active Substance: METHADONE HYDROCHLORIDE
     Indication: PRODUCT USED FOR UNKNOWN INDICATION
     Dosage: 15 MG DAILY (FREQUENCY UNKNOWN)
     Route: 048
     Dates: start: 20200626
  5. TRAMADOL. [Concomitant]
     Active Substance: TRAMADOL
     Indication: PRODUCT USED FOR UNKNOWN INDICATION
     Dosage: 100 MG DAILY (FREQUENCY UNKNOWN)
     Route: 048
     Dates: start: 20191014
  6. OXYCONTIN [Concomitant]
     Active Substance: OXYCODONE HYDROCHLORIDE
     Indication: PRODUCT USED FOR UNKNOWN INDICATION
     Dosage: 30 MG DAILY (FREQUENCY UNKNOWN)
     Route: 048
     Dates: start: 20191014
  7. LAMOTRIGINE. [Concomitant]
     Active Substance: LAMOTRIGINE
     Indication: PRODUCT USED FOR UNKNOWN INDICATION
     Dosage: 50 MG DAILY (FREQUENCY UNKNOWN)
     Route: 048
     Dates: start: 20191014, end: 20201218
  8. LACTULOSE. [Concomitant]
     Active Substance: LACTULOSE
     Indication: PRODUCT USED FOR UNKNOWN INDICATION
     Dosage: 20 ML DAILY (FREQUENCY UNKNOWN)
     Route: 048
     Dates: start: 20191014
  9. FENTANYL. [Concomitant]
     Active Substance: FENTANYL
     Indication: PRODUCT USED FOR UNKNOWN INDICATION
     Dosage: 75 MCG DAILY (FREQUENCY UNKNOWN)
     Route: 062
  10. IRBESARTAN. [Concomitant]
     Active Substance: IRBESARTAN
     Indication: PRODUCT USED FOR UNKNOWN INDICATION
     Dosage: 300 MG DAILY (FREQUENCY UNKNOWN)
     Route: 048
     Dates: start: 20180810, end: 20201214
  11. ASPIRIN. [Concomitant]
     Active Substance: ASPIRIN
     Indication: PRODUCT USED FOR UNKNOWN INDICATION
     Dosage: 100  MG DAILY (FREQUENCY UNKNOWN)
     Route: 048
     Dates: start: 2018
  12. NOVORAPID [Concomitant]
     Active Substance: INSULIN ASPART
     Indication: PRODUCT USED FOR UNKNOWN INDICATION
     Dosage: 12 UNITS DAILY TDS (FREQUENCY UNKNOWN)
     Route: 058
     Dates: start: 20200626
  13. MELOXICAN [Concomitant]
     Active Substance: MELOXICAM
     Indication: PRODUCT USED FOR UNKNOWN INDICATION
     Dosage: 400 MG DAILY (FREQUENCY UNKNOWN)
     Route: 048
     Dates: start: 20190717, end: 20201214
  14. PARACETAMOL [Concomitant]
     Active Substance: ACETAMINOPHEN
     Indication: PRODUCT USED FOR UNKNOWN INDICATION
     Dosage: 3000  MG DAILY (FREQUENCY UNKNOWN)
     Route: 048
     Dates: start: 20191014
  15. CARVEDILOL. [Concomitant]
     Active Substance: CARVEDILOL
     Route: 048
     Dates: start: 2020
  16. LANTUS [Concomitant]
     Active Substance: INSULIN GLARGINE
     Indication: PRODUCT USED FOR UNKNOWN INDICATION
     Dosage: 35 UNITS DAILY (FREQUENCY UNKNOWN)
     Route: 058
     Dates: start: 20200626
  17. CARVEDILOL. [Concomitant]
     Active Substance: CARVEDILOL
     Indication: PRODUCT USED FOR UNKNOWN INDICATION
     Route: 048
     Dates: start: 20190603, end: 2020
  18. PANTOPRAZOLE [Concomitant]
     Active Substance: PANTOPRAZOLE
     Indication: PRODUCT USED FOR UNKNOWN INDICATION
     Dosage: 40  MG DAILY (FREQUENCY UNKNOWN)
     Route: 048
     Dates: start: 20191014
  19. ABSTRAL [Concomitant]
     Active Substance: FENTANYL CITRATE
     Indication: PRODUCT USED FOR UNKNOWN INDICATION
     Dosage: 200 MCG DAILY (FREQUENCY UNKNOWN)
     Route: 048
  20. MAXOLON [Concomitant]
     Active Substance: METOCLOPRAMIDE HYDROCHLORIDE
     Indication: PRODUCT USED FOR UNKNOWN INDICATION
     Dosage: 10 MG DAILY (FREQUENCY UNKNOWN)
     Route: 048
     Dates: start: 20200812
  21. PERINDOPRIL [Concomitant]
     Active Substance: PERINDOPRIL
     Indication: PRODUCT USED FOR UNKNOWN INDICATION
     Dosage: 5 MG DAILY (FREQUENCY UNKNOWN)
     Route: 048
     Dates: start: 20201109, end: 20201218

REACTIONS (2)
  - Hypertension [Unknown]
  - Cerebral haemorrhage [Fatal]

NARRATIVE: CASE EVENT DATE: 2020
